FAERS Safety Report 23170487 (Version 7)
Quarter: 2024Q2

REPORT INFORMATION
  Report Type: Report from Study
  Country: CO (occurrence: CO)
  Receive Date: 20231110
  Receipt Date: 20240618
  Transmission Date: 20240715
  Serious: Yes (Hospitalization, Other)
  Sender: FDA-Public Use
  Company Number: CO-002147023-NVSC2023CO237450

PATIENT
  Sex: Female
  Weight: 52 kg

DRUGS (4)
  1. KISQALI [Suspect]
     Active Substance: RIBOCICLIB
     Indication: Breast cancer metastatic
     Dosage: 600 MG, QD
     Route: 048
     Dates: start: 20230726
  2. KISQALI [Suspect]
     Active Substance: RIBOCICLIB
     Indication: Hormone receptor positive HER2 negative breast cancer
     Dosage: 600 MG, QD
     Route: 048
     Dates: start: 202309, end: 20231126
  3. KISQALI [Suspect]
     Active Substance: RIBOCICLIB
     Indication: Breast cancer
     Dosage: 3 DOSAGE FORM, QD
     Route: 048
     Dates: start: 202310
  4. FEMARA [Suspect]
     Active Substance: LETROZOLE
     Indication: Breast cancer
     Dosage: 1 DOSAGE FORM, QD (DAILY IN THE AFTERNOON)
     Route: 048
     Dates: start: 202310

REACTIONS (9)
  - Decreased immune responsiveness [Unknown]
  - Ill-defined disorder [Unknown]
  - Liver injury [Unknown]
  - Pruritus [Recovered/Resolved]
  - Weight increased [Not Recovered/Not Resolved]
  - Weight decreased [Unknown]
  - Headache [Recovered/Resolved]
  - Pruritus [Not Recovered/Not Resolved]
  - Headache [Not Recovered/Not Resolved]
